FAERS Safety Report 7294966-2 (Version None)
Quarter: 2011Q1

REPORT INFORMATION
  Report Type: 
  Country: None (occurrence: None)
  Receive Date: 20110216
  Receipt Date: 20110208
  Transmission Date: 20110831
  Serious: Yes (Hospitalization)
  Sender: FDA-Public Use
  Company Number: FR-JNJFOC-20110200099

PATIENT
  Sex: Female

DRUGS (3)
  1. ZYPREXA [Suspect]
     Route: 048
  2. ZYPREXA [Suspect]
     Indication: MENTAL DISORDER
     Route: 048
  3. GYNO-PEVARYL [Suspect]
     Indication: VULVOVAGINAL MYCOTIC INFECTION
     Route: 067

REACTIONS (6)
  - KUSSMAUL RESPIRATION [None]
  - HYPOKINESIA [None]
  - GOITRE [None]
  - ALTERED STATE OF CONSCIOUSNESS [None]
  - KETOACIDOSIS [None]
  - BLOOD GLUCOSE INCREASED [None]
